FAERS Safety Report 10243420 (Version 1)
Quarter: 2014Q2

REPORT INFORMATION
  Report Type: Report from Study
  Country: US (occurrence: US)
  Receive Date: 20140618
  Receipt Date: 20140618
  Transmission Date: 20141212
  Serious: Yes (Hospitalization)
  Sender: FDA-Public Use
  Company Number: US-SA-2014SA075520

PATIENT
  Age: 67 Year
  Sex: Female

DRUGS (4)
  1. LANTUS SOLOSTAR [Suspect]
     Indication: DIABETES MELLITUS
     Dosage: 40 U Q AM, 80 UNITS Q PM
     Route: 058
  2. LANTUS SOLOSTAR [Suspect]
     Indication: DIABETES MELLITUS
     Route: 058
  3. SOLOSTAR [Concomitant]
     Indication: DIABETES MELLITUS
  4. SOLOSTAR [Concomitant]
     Indication: DIABETES MELLITUS

REACTIONS (7)
  - Coronary artery occlusion [Not Recovered/Not Resolved]
  - Loss of consciousness [Recovered/Resolved]
  - Dizziness [Not Recovered/Not Resolved]
  - Surgery [Unknown]
  - Hip surgery [Unknown]
  - Drug administration error [Unknown]
  - Drug dose omission [Unknown]
